FAERS Safety Report 10399648 (Version 1)
Quarter: 2014Q3

REPORT INFORMATION
  Report Type: Spontaneous
  Country: TW (occurrence: None)
  Receive Date: 20140819
  Receipt Date: 20140819
  Transmission Date: 20150326
  Serious: Yes (Other)
  Sender: FDA-Public Use
  Company Number: 2014COR00053

PATIENT
  Age: 26 Year
  Sex: Male

DRUGS (1)
  1. AMPHETAMINE [Suspect]
     Active Substance: AMPHETAMINE

REACTIONS (8)
  - Drug abuse [None]
  - Excoriation [None]
  - Somatic delusion [None]
  - Intentional self-injury [None]
  - Delusion [None]
  - Fungal infection [None]
  - Pruritus generalised [None]
  - Formication [None]
